FAERS Safety Report 6150856-X (Version None)
Quarter: 2009Q2

REPORT INFORMATION
  Report Type: 
  Country: None (occurrence: None)
  Receive Date: 20090408
  Receipt Date: 20090325
  Transmission Date: 20091009
  Serious: Yes (Death)
  Sender: FDA-Public Use
  Company Number: MC200900064

PATIENT
  Age: 76 Year
  Sex: Male
  Weight: 81.6 kg

DRUGS (16)
  1. ANGIOMAX [Suspect]
     Indication: PERCUTANEOUS CORONARY INTERVENTION
     Dosage: 0.75 MG/KG, BOLUS, INTRAVENOUS; 1.75 MG/KG, HR, INTRAVENOUS
     Route: 042
     Dates: start: 20090217, end: 20090217
  2. ANGIOMAX [Suspect]
     Indication: STENT PLACEMENT
     Dosage: 0.75 MG/KG, BOLUS, INTRAVENOUS; 1.75 MG/KG, HR, INTRAVENOUS
     Route: 042
     Dates: start: 20090217, end: 20090217
  3. ANGIOMAX [Suspect]
     Indication: PERCUTANEOUS CORONARY INTERVENTION
     Dosage: 0.75 MG/KG, BOLUS, INTRAVENOUS; 1.75 MG/KG, HR, INTRAVENOUS
     Route: 042
     Dates: start: 20090217, end: 20090217
  4. ANGIOMAX [Suspect]
     Indication: STENT PLACEMENT
     Dosage: 0.75 MG/KG, BOLUS, INTRAVENOUS; 1.75 MG/KG, HR, INTRAVENOUS
     Route: 042
     Dates: start: 20090217, end: 20090217
  5. PLAVIX [Suspect]
     Dosage: 75 MG, QD
  6. ASPIRIN [Suspect]
     Dosage: 81 MG, QD; 162 MG, SINGLE
     Dates: start: 20090311, end: 20090311
  7. TOPROL-XL [Concomitant]
  8. BENICAR [Concomitant]
  9. ZOCOR [Concomitant]
  10. IMDUR [Concomitant]
  11. TRICOR /00499301/ (FENOFIBRATE) [Concomitant]
  12. LANOXIN [Concomitant]
  13. LOVAZA [Concomitant]
  14. NEXIUM [Concomitant]
  15. MULTIVITAMIN /00831701/ (VITAMINS NOS) [Concomitant]
  16. NITROGLYCERIN [Concomitant]

REACTIONS (6)
  - CEREBRAL HAEMORRHAGE [None]
  - COAGULATION TIME PROLONGED [None]
  - DISORIENTATION [None]
  - PROCEDURAL COMPLICATION [None]
  - SUBARACHNOID HAEMORRHAGE [None]
  - SUBDURAL HAEMORRHAGE [None]
